FAERS Safety Report 8829065 (Version 3)
Quarter: 2012Q4

REPORT INFORMATION
  Report Type: 
  Country: FR (occurrence: FR)
  Receive Date: 20121008
  Receipt Date: 20121120
  Transmission Date: 20130627
  Serious: Yes (Death, Hospitalization, Other)
  Sender: FDA-Public Use
  Company Number: FR-ROCHE-1141369

PATIENT
  Sex: Female

DRUGS (10)
  1. ZELBORAF [Suspect]
     Indication: MALIGNANT MELANOMA
     Route: 048
     Dates: start: 20120820
  2. ZELBORAF [Suspect]
     Route: 048
  3. CORTANCYL [Concomitant]
     Route: 065
  4. CORTANCYL [Concomitant]
     Route: 065
  5. CORTANCYL [Concomitant]
     Route: 065
  6. DIFFU K [Concomitant]
     Route: 065
  7. INEXIUM [Concomitant]
     Route: 065
  8. DIPROSONE [Concomitant]
  9. ATARAX [Concomitant]
  10. XYZALL [Concomitant]

REACTIONS (6)
  - Cerebral disorder [Fatal]
  - Photosensitivity reaction [Recovered/Resolved]
  - Pyrexia [Recovered/Resolved]
  - Lymphopenia [Recovered/Resolved]
  - Rash pustular [Recovered/Resolved]
  - Erythema [Recovered/Resolved]
